FAERS Safety Report 12781895 (Version 3)
Quarter: 2016Q4

REPORT INFORMATION
  Report Type: Spontaneous
  Country: AT (occurrence: AT)
  Receive Date: 20160926
  Receipt Date: 20161004
  Transmission Date: 20170207
  Serious: Yes (Life-Threatening, Hospitalization, Other)
  Sender: FDA-Public Use
  Company Number: AT-ASTRAZENECA-2016SF01604

PATIENT
  Sex: Female

DRUGS (12)
  1. PANTOLOC [Concomitant]
     Active Substance: PANTOPRAZOLE SODIUM
     Dosage: 40 MG DAILY
  2. URIVESC [Concomitant]
     Active Substance: TROSPIUM CHLORIDE
  3. MAXI-KALZ [Concomitant]
  4. BRILIQUE [Suspect]
     Active Substance: TICAGRELOR
     Route: 048
  5. DETRUSITOL [Concomitant]
     Active Substance: TOLTERODINE TARTRATE
  6. HEPARIN [Concomitant]
     Active Substance: HEPARIN SODIUM
     Dosage: 4000 EINHEITEN DAILY
     Route: 042
  7. EUTHYROX [Concomitant]
     Active Substance: LEVOTHYROXINE SODIUM
     Dosage: 75 UG 1-0-0
  8. ACCUZIDE [Concomitant]
     Active Substance: HYDROCHLOROTHIAZIDE\QUINAPRIL HYDROCHLORIDE
  9. CEREBOKAN [Concomitant]
     Active Substance: GINKGO
  10. SORTIS [Concomitant]
     Active Substance: ATORVASTATIN
     Dosage: 80 MG DAILY
  11. ACCUPRO [Concomitant]
     Active Substance: QUINAPRIL HYDROCHLORIDE
  12. PRAM [Concomitant]
     Dosage: 20 MG

REACTIONS (2)
  - Acute myocardial infarction [Unknown]
  - Vascular stent thrombosis [Recovered/Resolved]
